FAERS Safety Report 10627306 (Version 2)
Quarter: 2014Q4

REPORT INFORMATION
  Report Type: Spontaneous
  Country: DE (occurrence: DE)
  Receive Date: 20141204
  Receipt Date: 20141204
  Transmission Date: 20150529
  Serious: Yes (Other)
  Sender: FDA-Public Use
  Company Number: DE-ASTELLAS-2014EU014332

PATIENT
  Age: 74 Year
  Sex: Male

DRUGS (2)
  1. L THYROXIN [Concomitant]
     Active Substance: LEVOTHYROXINE SODIUM
     Indication: HYPOTHYROIDISM
     Dosage: UNK UNK, ONCE DAILY
     Route: 048
  2. BETMIGA [Suspect]
     Active Substance: MIRABEGRON
     Indication: HYPERTONIC BLADDER
     Route: 048
     Dates: start: 20141022, end: 20141025

REACTIONS (4)
  - Abdominal pain [Recovered/Resolved]
  - Dizziness [Recovered/Resolved]
  - Diarrhoea [Unknown]
  - Visual impairment [Recovered/Resolved]

NARRATIVE: CASE EVENT DATE: 20141022
